FAERS Safety Report 7083756-1 (Version None)
Quarter: 2010Q4

REPORT INFORMATION
  Report Type: 
  Country: None (occurrence: None)
  Receive Date: 20101104
  Receipt Date: 20101102
  Transmission Date: 20110411
  Serious: No
  Sender: FDA-Public Use
  Company Number: SG-MERCK-1010USA03646

PATIENT
  Age: 23 Year
  Sex: Female

DRUGS (3)
  1. TRUSOPT [Suspect]
     Indication: GLAUCOMA
     Route: 047
     Dates: start: 20101028
  2. COMBIGAN [Concomitant]
     Indication: GLAUCOMA
     Route: 047
  3. LUMIGAN [Concomitant]
     Indication: GLAUCOMA
     Route: 047

REACTIONS (3)
  - EYE PAIN [None]
  - HYPOAESTHESIA [None]
  - HYPOAESTHESIA FACIAL [None]
